FAERS Safety Report 9679983 (Version 1)
Quarter: 2013Q4

REPORT INFORMATION
  Report Type: Spontaneous
  Country: US (occurrence: US)
  Receive Date: 20131110
  Receipt Date: 20131110
  Transmission Date: 20140711
  Serious: Yes (Other)
  Sender: FDA-Public Use
  Company Number: PHEH2013US023251

PATIENT
  Sex: Male

DRUGS (1)
  1. MYFORTIC [Suspect]

REACTIONS (1)
  - Hearing impaired [Unknown]
